FAERS Safety Report 4895058-X (Version None)
Quarter: 2006Q1

REPORT INFORMATION
  Report Type: 
  Country: None (occurrence: None)
  Receive Date: 20060130
  Receipt Date: 20051214
  Transmission Date: 20060701
  Serious: No
  Sender: FDA-Public Use
  Company Number: US-BRISTOL-MYERS SQUIBB COMPANY-13215660

PATIENT
  Age: 56 Year
  Sex: Female

DRUGS (4)
  1. GLUCOPHAGE [Suspect]
     Indication: DIABETES MELLITUS NON-INSULIN-DEPENDENT
     Route: 048
  2. METFORMIN HCL [Suspect]
     Indication: DIABETES MELLITUS NON-INSULIN-DEPENDENT
  3. LISINOPRIL [Concomitant]
     Indication: HYPERTENSION
  4. ESTROGEN CONJUGATED [Concomitant]
     Indication: HORMONE REPLACEMENT THERAPY

REACTIONS (1)
  - DIARRHOEA [None]
